FAERS Safety Report 5152113-7 (Version None)
Quarter: 2006Q4

REPORT INFORMATION
  Report Type: 
  Country: None (occurrence: None)
  Receive Date: 20061113
  Receipt Date: 20061113
  Transmission Date: 20070319
  Serious: No
  Sender: FDA-Public Use
  Company Number: None

PATIENT
  Age: 43 Year
  Sex: Female
  Weight: 52.1637 kg

DRUGS (1)
  1. TAXOL [Suspect]
     Indication: ARTERIAL OCCLUSIVE DISEASE
     Dosage: ONCE INTRA-ARTER
     Route: 013
     Dates: start: 20060703

REACTIONS (8)
  - CARDIAC FLUTTER [None]
  - CHEST PAIN [None]
  - DYSPNOEA [None]
  - FEELING ABNORMAL [None]
  - ILL-DEFINED DISORDER [None]
  - PAIN [None]
  - POST PROCEDURAL COMPLICATION [None]
  - SURGICAL PROCEDURE REPEATED [None]
